FAERS Safety Report 9859254 (Version 1)
Quarter: 2014Q1

REPORT INFORMATION
  Report Type: Spontaneous
  Country: US (occurrence: US)
  Receive Date: 20140131
  Receipt Date: 20140131
  Transmission Date: 20141002
  Serious: No
  Sender: FDA-Public Use
  Company Number: US-GILEAD-2013-0069536

PATIENT
  Sex: Male

DRUGS (1)
  1. CAYSTON [Suspect]
     Indication: CYSTIC FIBROSIS
     Dosage: UNK
     Route: 055
     Dates: start: 201302

REACTIONS (2)
  - Dizziness [Unknown]
  - Cough [Unknown]
